FAERS Safety Report 13883173 (Version 1)
Quarter: 2017Q3

REPORT INFORMATION
  Report Type: Spontaneous
  Country: US (occurrence: US)
  Receive Date: 20170818
  Receipt Date: 20170818
  Transmission Date: 20171127
  Serious: No
  Sender: FDA-Public Use
  Company Number: GXBR2017US001565

PATIENT
  Sex: Female

DRUGS (1)
  1. LATANOPROST. [Suspect]
     Active Substance: LATANOPROST
     Indication: MACULAR OEDEMA
     Dosage: UNK
     Route: 047
     Dates: start: 2014

REACTIONS (7)
  - Arthralgia [Unknown]
  - Chest pain [Unknown]
  - Chest discomfort [Unknown]
  - Headache [Unknown]
  - Muscle tightness [Unknown]
  - Myalgia [Unknown]
  - Nasal congestion [Unknown]
